FAERS Safety Report 9099859 (Version 2)
Quarter: 2013Q3

REPORT INFORMATION
  Report Type: Report from Study
  Country: US (occurrence: US)
  Receive Date: 20130214
  Receipt Date: 20130819
  Transmission Date: 20140515
  Serious: Yes (Death)
  Sender: FDA-Public Use
  Company Number: US-ROCHE-1190964

PATIENT
  Age: 68 Year
  Sex: Female
  Weight: 47.22 kg

DRUGS (16)
  1. AVASTIN [Suspect]
     Indication: LUNG NEOPLASM MALIGNANT
     Route: 042
     Dates: start: 20120328
  2. AVASTIN [Suspect]
     Route: 042
     Dates: start: 20100726, end: 20101028
  3. DICLOFENAC SODIUM [Concomitant]
     Route: 048
     Dates: start: 20101229
  4. RECLAST [Concomitant]
     Dosage: LAST DOSE : MAY 2010
     Route: 042
     Dates: start: 20110307
  5. SINEMET [Concomitant]
     Dosage: DOSEE: 25-250 MG
     Route: 048
     Dates: start: 20101229
  6. SPIRIVA [Concomitant]
     Route: 048
     Dates: start: 20101229
  7. VERAPAMIL [Concomitant]
     Dosage: USE AS DIRECETED
     Route: 065
     Dates: start: 20111214
  8. VITAMIN C [Concomitant]
     Route: 048
     Dates: start: 20101229
  9. XANAX [Concomitant]
     Dosage: AS NEEDED
     Route: 048
     Dates: start: 20120228
  10. ZEGERID [Concomitant]
     Route: 048
     Dates: start: 20120228
  11. ZOCOR [Concomitant]
     Dosage: AS NEEDED
     Route: 048
     Dates: start: 20101229
  12. DEXAMETHASON [Concomitant]
     Dosage: 1 TABLET DAILY 1 WEEK BEFORE CHEMOTHERAPY AND 1 TABLET DAILY FOR 3 WEEKS AFTER CHEMO
     Route: 048
     Dates: start: 20110307
  13. FERROUS SULFATE [Concomitant]
     Route: 048
     Dates: start: 20120102
  14. FOLIC ACID [Concomitant]
     Dosage: 1 TABLET DAILY 1 WEEK BEFORE CHEMOTHERAPY AND 1 TABLET DAILY FOR 3 WEEKS AFTER CHEMOTHERAPY
     Route: 048
     Dates: start: 20110307
  15. SEREVENT [Concomitant]
     Route: 065
     Dates: start: 20110307
  16. MEGESTROL ACETATE [Concomitant]
     Dosage: 10 ML TWICE DAILY
     Route: 048
     Dates: start: 20120228

REACTIONS (1)
  - Lung cancer metastatic [Fatal]
